FAERS Safety Report 8448663-8 (Version None)
Quarter: 2012Q2

REPORT INFORMATION
  Report Type: 
  Country: None (occurrence: None)
  Receive Date: 20120619
  Receipt Date: 20120613
  Transmission Date: 20120825
  Serious: Yes (Other)
  Sender: FDA-Public Use
  Company Number: CA-MERCK-1206USA02191

PATIENT
  Age: 48 Year
  Sex: Male

DRUGS (16)
  1. ISENTRESS [Suspect]
     Route: 048
  2. REYATAZ [Concomitant]
     Route: 065
  3. NIZORAL [Concomitant]
     Route: 065
  4. ENSURE PLUS [Concomitant]
     Route: 065
  5. LEVOMEPROMAZINE [Concomitant]
     Route: 065
  6. CESAMET [Concomitant]
     Route: 065
  7. CLOBETASOL PROPIONATE [Concomitant]
     Route: 065
  8. ACYCLOVIR [Concomitant]
     Route: 065
  9. VIAGRA [Concomitant]
     Route: 065
  10. CYANOCOBALAMIN [Concomitant]
     Route: 065
  11. VOLTAREN-XR [Concomitant]
     Route: 065
  12. CYMBALTA [Concomitant]
     Route: 065
  13. LOCACORTEN VIOFORM [Concomitant]
     Route: 065
  14. MS CONTIN [Concomitant]
     Route: 065
  15. FENTANYL [Concomitant]
     Route: 065
  16. ANDROGEL [Concomitant]
     Route: 065

REACTIONS (3)
  - BLOOD CREATINE PHOSPHOKINASE INCREASED [None]
  - MUSCLE FATIGUE [None]
  - PAIN [None]
